FAERS Safety Report 5472475-0 (Version None)
Quarter: 2007Q4

REPORT INFORMATION
  Report Type: 
  Country: None (occurrence: None)
  Receive Date: 20071001
  Receipt Date: 20070927
  Transmission Date: 20080405
  Serious: Yes (Hospitalization)
  Sender: FDA-Public Use
  Company Number: US-BRISTOL-MYERS SQUIBB COMPANY-13907845

PATIENT
  Age: 66 Year
  Sex: Male

DRUGS (21)
  1. PACLITAXEL [Suspect]
     Indication: NON-SMALL CELL LUNG CANCER
     Route: 042
     Dates: start: 20070628
  2. CARBOPLATIN [Suspect]
     Indication: NON-SMALL CELL LUNG CANCER
     Route: 042
     Dates: start: 20070628
  3. CP-751,871 [Suspect]
     Indication: NON-SMALL CELL LUNG CANCER
     Dosage: 1360 MG ADMINISTERED ON 20-JUL-2007.
     Route: 042
     Dates: start: 20070629
  4. SIMVASTATIN [Concomitant]
     Indication: BLOOD CHOLESTEROL
     Route: 048
     Dates: start: 20040101
  5. ASPIRIN [Concomitant]
     Route: 048
     Dates: start: 20000101
  6. ALBUTEROL [Concomitant]
     Route: 055
     Dates: start: 20040101
  7. IPRATROPIUM BROMIDE [Concomitant]
     Indication: GOUT
     Route: 055
     Dates: start: 20040101
  8. OMEPRAZOLE [Concomitant]
     Indication: DYSPEPSIA
     Route: 048
     Dates: start: 20070101
  9. PREDNISONE [Concomitant]
     Route: 048
     Dates: start: 20070101
  10. VICODIN [Concomitant]
     Route: 048
     Dates: start: 20070101
  11. AMBIEN [Concomitant]
     Route: 048
     Dates: start: 20070808
  12. MOTRIN [Concomitant]
     Indication: MYALGIA
     Route: 048
     Dates: start: 20070726
  13. CLARITIN [Concomitant]
     Indication: MYALGIA
     Route: 048
     Dates: start: 20070811
  14. MEGACE [Concomitant]
     Route: 048
     Dates: start: 20070101
  15. ZOFRAN [Concomitant]
     Route: 048
     Dates: start: 20070809
  16. LEXAPRO [Concomitant]
     Route: 048
     Dates: start: 20070101
  17. METFORMIN [Concomitant]
     Indication: BLOOD GLUCOSE INCREASED
     Dosage: GIVEN ON 24-AUG-2007
     Route: 048
     Dates: start: 20070823
  18. ARANESP [Concomitant]
     Indication: HAEMOGLOBIN
     Route: 058
     Dates: start: 20070823, end: 20070823
  19. MAGNESIUM SULFATE [Concomitant]
     Dates: start: 20070726
  20. PYRIDOXINE HCL [Concomitant]
     Dates: start: 20070701
  21. ALLOPURINOL [Concomitant]
     Indication: GOUT
     Route: 048
     Dates: start: 20070101

REACTIONS (6)
  - ASTHENIA [None]
  - HYPOAESTHESIA [None]
  - INCONTINENCE [None]
  - MUSCULAR WEAKNESS [None]
  - ORAL INTAKE REDUCED [None]
  - RENAL FAILURE ACUTE [None]
